FAERS Safety Report 19579533 (Version 1)
Quarter: 2021Q3

REPORT INFORMATION
  Report Type: Spontaneous
  Country: CA (occurrence: CA)
  Receive Date: 20210719
  Receipt Date: 20210719
  Transmission Date: 20211014
  Serious: Yes (Hospitalization)
  Sender: FDA-Public Use
  Company Number: CA-TAKEDA-2021TUS044371

PATIENT
  Age: 61 Year
  Sex: Female
  Weight: 90 kg

DRUGS (6)
  1. FRAGMINE [Concomitant]
     Active Substance: DALTEPARIN SODIUM
     Route: 065
  2. IRBESARTAN. [Concomitant]
     Active Substance: IRBESARTAN
     Route: 065
  3. HUMAN NORMAL IMMUNOGLOBULIN [Suspect]
     Active Substance: HUMAN IMMUNOGLOBULIN G
     Indication: PARANEOPLASTIC SYNDROME
     Dosage: 90 GRAM
     Route: 042
  4. TAMSULOSIN [Concomitant]
     Active Substance: TAMSULOSIN
     Route: 065
  5. POLYETHYLENE GLYCOL [Concomitant]
     Active Substance: POLYETHYLENE GLYCOLS
     Route: 065
  6. THIAMINE. [Concomitant]
     Active Substance: THIAMINE
     Route: 065

REACTIONS (12)
  - Chest pain [Recovered/Resolved]
  - Tachycardia [Recovered/Resolved]
  - Wheezing [Recovered/Resolved]
  - Platelet count decreased [Recovered/Resolved]
  - Angioedema [Recovered/Resolved]
  - Vomiting [Recovered/Resolved]
  - Drug intolerance [Recovered/Resolved]
  - Anaemia [Recovered/Resolved]
  - White blood cell count decreased [Recovered/Resolved]
  - Dyspnoea [Recovered/Resolved]
  - Nausea [Recovered/Resolved]
  - Swelling [Recovered/Resolved]
